FAERS Safety Report 14211002 (Version 1)
Quarter: 2017Q4

REPORT INFORMATION
  Report Type: Spontaneous
  Country: KR (occurrence: KR)
  Receive Date: 20171121
  Receipt Date: 20171121
  Transmission Date: 20180321
  Serious: Yes (Other)
  Sender: FDA-Public Use
  Company Number: KR-JNJFOC-20171118782

PATIENT

DRUGS (2)
  1. SOFOSBUVIR [Suspect]
     Active Substance: SOFOSBUVIR
     Indication: CHRONIC HEPATITIS C
     Route: 065
  2. SIMEPREVIR [Suspect]
     Active Substance: SIMEPREVIR
     Indication: CHRONIC HEPATITIS C
     Route: 065

REACTIONS (21)
  - Decreased appetite [Unknown]
  - Nausea [Unknown]
  - Abdominal discomfort [Unknown]
  - Myalgia [Unknown]
  - Cellulitis [Unknown]
  - Rash [Unknown]
  - Cough [Unknown]
  - Constipation [Unknown]
  - Fatigue [Unknown]
  - Confusional state [Unknown]
  - Headache [Unknown]
  - Alopecia [Unknown]
  - Vomiting [Unknown]
  - Arthralgia [Unknown]
  - Pruritus [Unknown]
  - Lymphocyte count decreased [Unknown]
  - Urinary tract infection [Unknown]
  - Diarrhoea [Unknown]
  - Anxiety [Unknown]
  - Haemoglobin decreased [Unknown]
  - Remission not achieved [Unknown]
